FAERS Safety Report 5629466-6 (Version None)
Quarter: 2008Q1

REPORT INFORMATION
  Report Type: 
  Country: None (occurrence: None)
  Receive Date: 20080215
  Receipt Date: 20080215
  Transmission Date: 20080703
  Serious: No
  Sender: FDA-Public Use
  Company Number: None

PATIENT
  Sex: Female
  Weight: 53.978 kg

DRUGS (14)
  1. INVEGA [Suspect]
     Indication: AFFECTIVE DISORDER
     Dosage: 6MG QAM P.O.
     Route: 048
     Dates: start: 20071024, end: 20071106
  2. INVEGA [Suspect]
     Indication: BORDERLINE PERSONALITY DISORDER
     Dosage: 6MG QAM P.O.
     Route: 048
     Dates: start: 20071024, end: 20071106
  3. INVEGA [Suspect]
     Indication: AFFECTIVE DISORDER
     Dosage: 6MG QAM P.O.
     Route: 048
     Dates: start: 20071211, end: 20080108
  4. INVEGA [Suspect]
     Indication: BORDERLINE PERSONALITY DISORDER
     Dosage: 6MG QAM P.O.
     Route: 048
     Dates: start: 20071211, end: 20080108
  5. MOTRIN [Concomitant]
  6. ZOLOFT [Concomitant]
  7. NEURONTIN [Concomitant]
  8. DEPO-PROVERA [Concomitant]
  9. GEODON [Concomitant]
  10. HEP. A VACCINE [Concomitant]
  11. ABILIFY [Concomitant]
  12. ANTABUSE [Concomitant]
  13. RELAFEN [Concomitant]
  14. AMOXICILLIN [Concomitant]

REACTIONS (4)
  - BREAST DISCHARGE [None]
  - BREAST PAIN [None]
  - DRUG INEFFECTIVE [None]
  - HYPERPROLACTINAEMIA [None]
